FAERS Safety Report 5959159-7 (Version None)
Quarter: 2008Q4

REPORT INFORMATION
  Report Type: 
  Country: None (occurrence: None)
  Receive Date: 20081120
  Receipt Date: 20080403
  Transmission Date: 20090506
  Serious: No
  Sender: FDA-Public Use
  Company Number: A0719167A

PATIENT
  Age: 56 Year
  Sex: Male

DRUGS (4)
  1. BUPROPION HYDROCHLORIDE [Suspect]
     Dosage: 100MG TWICE PER DAY
     Route: 048
     Dates: start: 20071101
  2. BUPROPION HYDROCHLORIDE [Suspect]
     Dosage: 200MG TWICE PER DAY
     Route: 048
     Dates: start: 20071101
  3. LAMICTAL [Suspect]
     Dosage: 200MG TWICE PER DAY
     Route: 048
     Dates: start: 20060501
  4. SLEEPING PILL [Concomitant]

REACTIONS (5)
  - ANXIETY [None]
  - DRUG INEFFECTIVE [None]
  - EXPIRED DRUG ADMINISTERED [None]
  - FEELING ABNORMAL [None]
  - INSOMNIA [None]
